FAERS Safety Report 10286562 (Version 1)
Quarter: 2014Q3

REPORT INFORMATION
  Report Type: Spontaneous
  Country: JP (occurrence: None)
  Receive Date: 20140707
  Receipt Date: 20140707
  Transmission Date: 20150326
  Serious: Yes (Death, Other)
  Sender: FDA-Public Use
  Company Number: SYM-2014-22495

PATIENT
  Age: 55 Year
  Sex: Male

DRUGS (4)
  1. THERAPEUTIC RADIOPHARMACEUTICALS (THERAPEUTIC RADIOPHARMACEUTICALS) [Concomitant]
     Active Substance: UNSPECIFIED INGREDIENT
  2. CISPLATIN (CISPLATIN) [Suspect]
     Active Substance: CISPLATIN
     Indication: NASOPHARYNGEAL CANCER
  3. FLUOROURACIL. [Suspect]
     Active Substance: FLUOROURACIL
     Indication: NASOPHARYNGEAL CANCER
  4. DOCETAXEL (DOCETAXEL) [Suspect]
     Active Substance: DOCETAXEL
     Indication: NASOPHARYNGEAL CANCER

REACTIONS (5)
  - Stomatitis [None]
  - Diarrhoea [None]
  - Pneumonia staphylococcal [None]
  - Septic shock [None]
  - Cytomegalovirus infection [None]
